FAERS Safety Report 15419104 (Version 3)
Quarter: 2018Q4

REPORT INFORMATION
  Report Type: Spontaneous
  Country: BR (occurrence: BR)
  Receive Date: 20180924
  Receipt Date: 20181130
  Transmission Date: 20190204
  Serious: Yes (Other)
  Sender: FDA-Public Use
  Company Number: BR-SA-2018SA255938

PATIENT
  Age: 64 Year
  Sex: Female
  Weight: 57 kg

DRUGS (5)
  1. METAMIZOLE SODIUM [Concomitant]
     Active Substance: METAMIZOLE SODIUM
     Indication: PREMEDICATION
     Dosage: 1000 MG
     Route: 042
     Dates: start: 20180805, end: 20180806
  2. THYMOGLOBULINE [Suspect]
     Active Substance: LAPINE T-LYMPHOCYTE IMMUNE GLOBULIN
     Indication: IMMUNOSUPPRESSION
     Dosage: 175 MG, QD
     Dates: start: 20180805, end: 20180806
  3. RANITIDINE. [Concomitant]
     Active Substance: RANITIDINE
     Indication: PROPHYLAXIS AGAINST GASTROINTESTINAL ULCER
     Dosage: 100 MG
     Route: 042
     Dates: start: 20180805
  4. CEFAZOLINE [CEFAZOLIN] [Concomitant]
     Indication: PROPHYLAXIS
     Dosage: 3 G
     Route: 042
     Dates: start: 20180805, end: 20180806
  5. HYDROCORTISONE. [Concomitant]
     Active Substance: HYDROCORTISONE
     Indication: PREMEDICATION
     Dosage: 300 MG
     Route: 042
     Dates: start: 20180805, end: 20180805

REACTIONS (4)
  - Haematocrit decreased [Recovered/Resolved]
  - Bradycardia [Recovered/Resolved]
  - Hypotension [Recovered/Resolved]
  - Haemoglobin decreased [Recovered/Resolved]

NARRATIVE: CASE EVENT DATE: 20180805
